FAERS Safety Report 9362946 (Version 2)
Quarter: 2013Q4

REPORT INFORMATION
  Report Type: Report from Study
  Country: AU (occurrence: AU)
  Receive Date: 20130624
  Receipt Date: 20131208
  Transmission Date: 20140711
  Serious: Yes (Hospitalization, Other)
  Sender: FDA-Public Use
  Company Number: AU-ROCHE-1238029

PATIENT
  Sex: Male

DRUGS (1)
  1. RANIBIZUMAB [Suspect]
     Indication: AGE-RELATED MACULAR DEGENERATION
     Route: 050
     Dates: start: 20120509

REACTIONS (4)
  - Age-related macular degeneration [Unknown]
  - Visual impairment [Recovered/Resolved]
  - Ophthalmological examination abnormal [Not Recovered/Not Resolved]
  - Vision blurred [Unknown]
